FAERS Safety Report 14179182 (Version 3)
Quarter: 2018Q1

REPORT INFORMATION
  Report Type: Spontaneous
  Country: US (occurrence: US)
  Receive Date: 20171110
  Receipt Date: 20180108
  Transmission Date: 20180508
  Serious: Yes (Other)
  Sender: FDA-Public Use
  Company Number: PHEH2017US036594

PATIENT
  Sex: Female
  Weight: 51.25 kg

DRUGS (2)
  1. ZOFRAN [Suspect]
     Active Substance: ONDANSETRON HYDROCHLORIDE
     Indication: VOMITING
     Dosage: 04 MG, Q6H
     Route: 048
     Dates: start: 19990410, end: 19990524
  2. ZOFRAN [Suspect]
     Active Substance: ONDANSETRON HYDROCHLORIDE
     Indication: VOMITING
     Dosage: 04 MG, Q6H
     Route: 042
     Dates: start: 19990410, end: 19990524

REACTIONS (5)
  - Seizure [Unknown]
  - Maternal exposure during pregnancy [Unknown]
  - Product use in unapproved indication [Unknown]
  - Pregnancy with advanced maternal age [Unknown]
  - Emotional distress [Unknown]
